FAERS Safety Report 4889441-6 (Version None)
Quarter: 2006Q1

REPORT INFORMATION
  Report Type: 
  Country: None (occurrence: None)
  Receive Date: 20060124
  Receipt Date: 20060118
  Transmission Date: 20060701
  Serious: Yes (Other)
  Sender: FDA-Public Use
  Company Number: PHEH2006US01083

PATIENT
  Sex: Female

DRUGS (1)
  1. FORADIL [Suspect]

REACTIONS (2)
  - BIOPSY TONGUE [None]
  - ORAL SOFT TISSUE DISORDER [None]
